FAERS Safety Report 5270101-7 (Version None)
Quarter: 2007Q1

REPORT INFORMATION
  Report Type: 
  Country: None (occurrence: None)
  Receive Date: 20070320
  Receipt Date: 20070307
  Transmission Date: 20070707
  Serious: Yes (Other)
  Sender: FDA-Public Use
  Company Number: US-ELI_LILLY_AND_COMPANY-US200612000373

PATIENT
  Sex: Female

DRUGS (8)
  1. CYMBALTA [Interacting]
     Indication: DEPRESSION
     Dosage: 30 MG, UNK
     Dates: start: 20061101
  2. CYMBALTA [Interacting]
     Dosage: 30 MG, 2/D
  3. PROZAC [Suspect]
     Indication: DEPRESSION
     Dosage: 120 MG, UNK
  4. PROZAC [Suspect]
     Dosage: 80 MG, UNK
  5. PROZAC [Suspect]
     Dosage: 60 MG, UNK
  6. PROZAC [Suspect]
     Dosage: 40 MG, UNK
     Dates: start: 20060101
  7. NORTRIPTYLINE HCL [Concomitant]
     Dosage: 75 MG, DAILY (1/D)
  8. INSULIN [Concomitant]

REACTIONS (8)
  - AGITATION [None]
  - ANXIETY [None]
  - DEPRESSION [None]
  - DRUG INTERACTION POTENTIATION [None]
  - DRUG TOXICITY [None]
  - FEELING ABNORMAL [None]
  - PRESCRIBED OVERDOSE [None]
  - SEDATION [None]
